FAERS Safety Report 15987739 (Version 4)
Quarter: 2019Q1

REPORT INFORMATION
  Report Type: Spontaneous
  Country: US (occurrence: US)
  Receive Date: 20190220
  Receipt Date: 20190228
  Transmission Date: 20190418
  Serious: Yes (Other)
  Sender: FDA-Public Use
  Company Number: US-BAUSCH-BL-2019-004842

PATIENT
  Age: 75 Year
  Sex: Female
  Weight: 61.29 kg

DRUGS (2)
  1. XIFAXAN [Suspect]
     Active Substance: RIFAXIMIN
     Indication: PRODUCT USE IN UNAPPROVED INDICATION
     Route: 048
     Dates: start: 20190212, end: 20190213
  2. XIFAXAN [Suspect]
     Active Substance: RIFAXIMIN
     Indication: GASTROINTESTINAL BACTERIAL OVERGROWTH
     Dosage: ABOUT 02 WEEKS
     Route: 048
     Dates: start: 201807, end: 2018

REACTIONS (3)
  - Blister [Unknown]
  - Urticaria [Not Recovered/Not Resolved]
  - Product use in unapproved indication [Unknown]

NARRATIVE: CASE EVENT DATE: 20190212
